FAERS Safety Report 15493796 (Version 1)
Quarter: 2018Q4

REPORT INFORMATION
  Report Type: Spontaneous
  Country: FR (occurrence: FR)
  Receive Date: 20181012
  Receipt Date: 20181012
  Transmission Date: 20190205
  Serious: Yes (Life-Threatening, Hospitalization, Other)
  Sender: FDA-Public Use
  Company Number: FR-MIST-TIR-2018-1052

PATIENT
  Age: 38 Year
  Sex: Male

DRUGS (4)
  1. LEVOTHYROXINE. [Suspect]
     Active Substance: LEVOTHYROXINE
     Indication: THYROID FUNCTION TEST ABNORMAL
     Dosage: 75MG
  2. EPINEPHRINE. [Suspect]
     Active Substance: EPINEPHRINE
     Indication: CARDIO-RESPIRATORY ARREST
  3. SUCCINYLCHOLINE CHLORIDE. [Suspect]
     Active Substance: SUCCINYLCHOLINE CHLORIDE
     Indication: PRODUCT USED FOR UNKNOWN INDICATION
  4. NOREPINEPHRINE. [Suspect]
     Active Substance: NOREPINEPHRINE
     Indication: CARDIO-RESPIRATORY ARREST

REACTIONS (9)
  - Rhabdomyolysis [Unknown]
  - Loss of consciousness [Unknown]
  - Heat stroke [Unknown]
  - Hyperkalaemia [Unknown]
  - Coma [Unknown]
  - Clonus [Unknown]
  - Cardio-respiratory arrest [Unknown]
  - Supraventricular tachycardia [Unknown]
  - Delirium [Unknown]

NARRATIVE: CASE EVENT DATE: 201606
